FAERS Safety Report 6131104-3 (Version None)
Quarter: 2009Q1

REPORT INFORMATION
  Report Type: 
  Country: None (occurrence: None)
  Receive Date: 20090325
  Receipt Date: 20090318
  Transmission Date: 20090719
  Serious: Yes (Other)
  Sender: FDA-Public Use
  Company Number: PHHY2009JP10010

PATIENT
  Age: 8 Year
  Sex: Male

DRUGS (4)
  1. SIMULECT [Suspect]
     Indication: RENAL TRANSPLANT
     Dosage: UNK
  2. TACROLIMUS [Concomitant]
     Dosage: UNK
  3. METHYLPREDNISOLONE 4MG TAB [Concomitant]
     Dosage: UNK
  4. MYCOPHENOLATE MOFETIL [Concomitant]
     Dosage: UNK

REACTIONS (2)
  - NEPHROCALCINOSIS [None]
  - PARATHYROID GLAND ENLARGEMENT [None]
